FAERS Safety Report 6356000-8 (Version None)
Quarter: 2009Q3

REPORT INFORMATION
  Report Type: 
  Country: None (occurrence: None)
  Receive Date: 20090914
  Receipt Date: 20090914
  Transmission Date: 20100115
  Serious: Yes (Other)
  Sender: FDA-Public Use
  Company Number: None

PATIENT
  Age: 35 Year
  Sex: Male
  Weight: 80.7403 kg

DRUGS (1)
  1. LEVAQUIN [Suspect]
     Indication: SINUSITIS
     Dosage: 1 TABLET ONCE A DAY  (I TOOK ONLY 1 TABLET)

REACTIONS (4)
  - EYE SWELLING [None]
  - LIP SWELLING [None]
  - PHARYNGEAL OEDEMA [None]
  - RASH [None]
